FAERS Safety Report 12519368 (Version 2)
Quarter: 2016Q3

REPORT INFORMATION
  Report Type: Report from Study
  Country: IN (occurrence: IN)
  Receive Date: 20160701
  Receipt Date: 20160712
  Transmission Date: 20161109
  Serious: Yes (Death, Hospitalization)
  Sender: FDA-Public Use
  Company Number: IN-BAXTER-2016BAX033977

PATIENT
  Age: 80 Year
  Sex: Male

DRUGS (1)
  1. LOW CALCIUM PERITONEAL DIALYSIS SOLUTION WITH 2.5% DEXTROSE [Suspect]
     Active Substance: CALCIUM CHLORIDE\DEXTROSE\MAGNESIUM CHLORIDE\SODIUM CHLORIDE\SODIUM LACTATE
     Indication: PERITONEAL DIALYSIS
     Route: 033
     Dates: start: 20150228, end: 20160627

REACTIONS (5)
  - Hypophagia [Unknown]
  - Death [Fatal]
  - Blood glucose increased [Unknown]
  - Urine output decreased [Unknown]
  - Fluid overload [Unknown]

NARRATIVE: CASE EVENT DATE: 20160627
